FAERS Safety Report 4707006-3 (Version None)
Quarter: 2005Q3

REPORT INFORMATION
  Report Type: 
  Country: None (occurrence: None)
  Receive Date: 20050701
  Receipt Date: 20050614
  Transmission Date: 20060218
  Serious: Yes (Hospitalization)
  Sender: FDA-Public Use
  Company Number: 2005001122

PATIENT
  Age: 69 Year
  Sex: Female

DRUGS (2)
  1. TARCEVA [Suspect]
     Indication: NON-SMALL CELL LUNG CANCER
     Dosage: 150 MG (QD), ORAL
     Route: 048
     Dates: start: 20050302
  2. METAMUCIL-2 [Concomitant]

REACTIONS (7)
  - ALOPECIA [None]
  - CLOSTRIDIUM COLITIS [None]
  - CYSTITIS [None]
  - DIARRHOEA [None]
  - HYPOTRICHOSIS [None]
  - PYREXIA [None]
  - RASH [None]
